FAERS Safety Report 9561608 (Version 2)
Quarter: 2014Q1

REPORT INFORMATION
  Report Type: Spontaneous
  Country: US (occurrence: US)
  Receive Date: 20130927
  Receipt Date: 20140116
  Transmission Date: 20141002
  Serious: No
  Sender: FDA-Public Use
  Company Number: US-BIOGENIDEC-2013BI061553

PATIENT
  Age: 41 Year
  Sex: Male

DRUGS (5)
  1. TECFIDERA [Suspect]
     Indication: MULTIPLE SCLEROSIS
     Route: 048
     Dates: start: 20130520
  2. VITAMIN D3 [Concomitant]
  3. VITAMIN B12 [Concomitant]
  4. DEXILANT [Concomitant]
  5. NAPROXEN [Concomitant]

REACTIONS (3)
  - Swelling face [Unknown]
  - Flushing [Unknown]
  - Pruritus [Unknown]
